FAERS Safety Report 5453235-3 (Version None)
Quarter: 2007Q3

REPORT INFORMATION
  Report Type: 
  Country: None (occurrence: None)
  Receive Date: 20070914
  Receipt Date: 20070904
  Transmission Date: 20080115
  Serious: Yes (Other)
  Sender: FDA-Public Use
  Company Number: PT-PFIZER INC-2007074817

PATIENT
  Sex: Male

DRUGS (1)
  1. XALATAN [Suspect]
     Indication: GLAUCOMA
     Route: 047

REACTIONS (4)
  - ADMINISTRATION SITE REACTION [None]
  - CORNEAL EXFOLIATION [None]
  - ULCERATIVE KERATITIS [None]
  - WRONG DRUG ADMINISTERED [None]
